FAERS Safety Report 7991052-0 (Version None)
Quarter: 2011Q4

REPORT INFORMATION
  Report Type: 
  Country: None (occurrence: None)
  Receive Date: 20111219
  Receipt Date: 20111213
  Transmission Date: 20120403
  Serious: Yes (Other)
  Sender: FDA-Public Use
  Company Number: US-ROCHE-793890

PATIENT
  Sex: Male
  Weight: 65.83 kg

DRUGS (2)
  1. ACCUTANE [Suspect]
     Dates: start: 20050101, end: 20070101
  2. ACCUTANE [Suspect]
     Indication: ACNE
     Route: 065
     Dates: start: 20000101, end: 20020101

REACTIONS (8)
  - CROHN'S DISEASE [None]
  - CHEST PAIN [None]
  - COLITIS ULCERATIVE [None]
  - INFLAMMATORY BOWEL DISEASE [None]
  - EMOTIONAL DISTRESS [None]
  - DEPRESSION [None]
  - SUICIDE ATTEMPT [None]
  - COAGULOPATHY [None]
